FAERS Safety Report 10455865 (Version 1)
Quarter: 2014Q3

REPORT INFORMATION
  Report Type: Spontaneous
  Country: US (occurrence: None)
  Receive Date: 20140915
  Receipt Date: 20140915
  Transmission Date: 20150326
  Serious: No
  Sender: FDA-Public Use
  Company Number: None

PATIENT
  Sex: Male

DRUGS (1)
  1. GLEEVEC [Suspect]
     Active Substance: IMATINIB MESYLATE

REACTIONS (7)
  - Melaena [None]
  - Wrong drug administered [None]
  - Renal impairment [None]
  - Drug dispensing error [None]
  - Abdominal pain upper [None]
  - Malaise [None]
  - White blood cell count decreased [None]

NARRATIVE: CASE EVENT DATE: 2014
